FAERS Safety Report 8798705 (Version 1)
Quarter: 2012Q4

REPORT INFORMATION
  Report Type: 
  Country: US (occurrence: US)
  Receive Date: 20120920
  Receipt Date: 20120920
  Transmission Date: 20130627
  Serious: Yes (Other)
  Sender: FDA-Public Use
  Company Number: US-ELI_LILLY_AND_COMPANY-US201205004178

PATIENT
  Age: 55 Year
  Sex: Female

DRUGS (2)
  1. FORTEO [Suspect]
     Indication: OSTEOPOROSIS
     Dosage: 20 ug, qd
     Dates: start: 201204
  2. OXYGEN [Concomitant]
     Dosage: UNK

REACTIONS (21)
  - Chronic obstructive pulmonary disease [Not Recovered/Not Resolved]
  - Joint stiffness [Unknown]
  - Musculoskeletal stiffness [Unknown]
  - Dizziness [Unknown]
  - Migraine [Unknown]
  - Pain in extremity [Unknown]
  - Muscle spasms [Unknown]
  - Insomnia [Unknown]
  - Vitamin D decreased [Unknown]
  - Blood triglycerides increased [Unknown]
  - High density lipoprotein decreased [Unknown]
  - Blood calcium increased [Unknown]
  - Limb discomfort [Unknown]
  - Mobility decreased [Unknown]
  - Dyspnoea [Unknown]
  - Speech disorder [Unknown]
  - Arthralgia [Unknown]
  - Pain in jaw [Unknown]
  - Toothache [Unknown]
  - Eye pain [Unknown]
  - Oropharyngeal pain [Unknown]
